FAERS Safety Report 8139551-5 (Version None)
Quarter: 2012Q1

REPORT INFORMATION
  Report Type: 
  Country: None (occurrence: None)
  Receive Date: 20120215
  Receipt Date: 20120201
  Transmission Date: 20120608
  Serious: Yes (Other)
  Sender: FDA-Public Use
  Company Number: BR-PFIZER INC-2010150399

PATIENT
  Age: 30 Year
  Sex: Female

DRUGS (5)
  1. GEODON [Suspect]
     Dosage: 40 MG, 1X/DAY
     Route: 048
  2. AKINETON [Suspect]
     Dosage: UNK
  3. GEODON [Suspect]
     Dosage: 80 MG, 1X/DAY
     Route: 048
  4. GEODON [Suspect]
     Indication: SCHIZOAFFECTIVE DISORDER
     Dosage: 40 MG, 1X/DAY
     Route: 048
     Dates: start: 20060101
  5. LAMOTRIGINE [Concomitant]
     Indication: AFFECTIVE DISORDER
     Dosage: 125 MG, TWO TABLETS AND HALF
     Dates: start: 20050101

REACTIONS (9)
  - AUTOIMMUNE THYROIDITIS [None]
  - VITAMIN D DECREASED [None]
  - HYPOTHYROIDISM [None]
  - MALAISE [None]
  - PARKINSON'S DISEASE [None]
  - SCHIZOAFFECTIVE DISORDER [None]
  - DEPRESSION [None]
  - DYSPHAGIA [None]
  - DYSPLASIA [None]
